FAERS Safety Report 18985735 (Version 1)
Quarter: 2021Q1

REPORT INFORMATION
  Report Type: Spontaneous
  Country: US (occurrence: US)
  Receive Date: 20210308
  Receipt Date: 20210308
  Transmission Date: 20210420
  Serious: Yes (Hospitalization)
  Sender: FDA-Public Use
  Company Number: None

PATIENT
  Sex: Male

DRUGS (2)
  1. DUTASTERIDE CAP 0.5MG [Concomitant]
     Active Substance: DUTASTERIDE
     Dates: start: 20210111
  2. DIMETHYL FUM [Suspect]
     Active Substance: DIMETHYL FUMARATE
     Indication: MULTIPLE SCLEROSIS
     Route: 048
     Dates: start: 20160422

REACTIONS (3)
  - Surgery [None]
  - Therapy interrupted [None]
  - Gastric disorder [None]
